FAERS Safety Report 12867644 (Version 1)
Quarter: 2016Q4

REPORT INFORMATION
  Report Type: Spontaneous
  Country: US (occurrence: US)
  Receive Date: 20161020
  Receipt Date: 20161020
  Transmission Date: 20170207
  Serious: Yes (Life-Threatening, Hospitalization)
  Sender: FDA-Public Use
  Company Number: US-BION-20160592

PATIENT
  Age: 46 Year
  Sex: Male

DRUGS (1)
  1. LOPRAMIDE HCL CAPSULES [Suspect]
     Active Substance: LOPERAMIDE HYDROCHLORIDE
     Indication: IRRITABLE BOWEL SYNDROME
     Dosage: 200 MG DAILY FOR LAST 2 DAYS
     Route: 048

REACTIONS (7)
  - Torsade de pointes [Unknown]
  - Electrocardiogram QT prolonged [Recovering/Resolving]
  - Ventricular arrhythmia [Recovering/Resolving]
  - Cardiac arrest [Recovering/Resolving]
  - Tachyarrhythmia [Recovering/Resolving]
  - Overdose [Recovering/Resolving]
  - Toxicity to various agents [None]
